FAERS Safety Report 12267455 (Version 1)
Quarter: 2016Q2

REPORT INFORMATION
  Report Type: Report from Study
  Country: FR (occurrence: FR)
  Receive Date: 20160414
  Receipt Date: 20160414
  Transmission Date: 20160815
  Serious: Yes (Hospitalization)
  Sender: FDA-Public Use
  Company Number: FR-ROCHE-1740875

PATIENT
  Sex: Female
  Weight: 53 kg

DRUGS (3)
  1. TAXOL [Suspect]
     Active Substance: PACLITAXEL
     Indication: BREAST CANCER
     Dosage: CYCLE NUMBER 5; CUMULATIVE DOSE SINCE THE 1ST ADMINISTRATION 2002.5MG
     Route: 042
     Dates: start: 20151126, end: 20160329
  2. LASILIX [Concomitant]
     Active Substance: FUROSEMIDE
     Indication: OEDEMA
     Route: 048
  3. BEVACIZUMAB [Suspect]
     Active Substance: BEVACIZUMAB
     Indication: BREAST CANCER
     Dosage: CYCLE NUMBER 5; CUMULATIVE DOSE SINCE THE 1ST ADMINISTRATION 5120MG
     Route: 042
     Dates: start: 20151126, end: 20160329

REACTIONS (4)
  - Decreased appetite [Unknown]
  - Dysphonia [Unknown]
  - General physical health deterioration [Unknown]
  - Asthenia [Unknown]

NARRATIVE: CASE EVENT DATE: 20160408
